FAERS Safety Report 10173400 (Version 1)
Quarter: 2014Q2

REPORT INFORMATION
  Report Type: Spontaneous
  Country: US (occurrence: None)
  Receive Date: 20140416
  Receipt Date: 20140416
  Transmission Date: 20141212
  Serious: No
  Sender: FDA-Public Use
  Company Number: 163-POMAL-14011105

PATIENT
  Age: 81 Year
  Sex: Male
  Weight: 93.35 kg

DRUGS (13)
  1. POMALYST [Suspect]
     Indication: PLASMA CELL MYELOMA
     Route: 048
     Dates: start: 201310
  2. DECADRON (DEXAMETHASONE) [Concomitant]
  3. CENTRUM SILVER (CENTRUM SILVER) [Concomitant]
  4. MOVE FREE (GLUCOSAMINE W/CHONDRFOITIN SULFATE) [Concomitant]
  5. METFORMIN (METFORMIN) [Concomitant]
  6. ZETIA (EZETIMIBE) [Concomitant]
  7. MACULAR HEALTH (OTHER VITAMIN PRODUCTS, COMBINATIONS) [Concomitant]
  8. KLOR CON (POTASSIUM CHLORIDE) [Concomitant]
  9. PANTOPRAZOLE (PANTOPRAZOLE) [Concomitant]
  10. LUNESTA [Concomitant]
  11. LYSITOR (OTHER THERAPEUTIC PRODUCTS) [Concomitant]
  12. BYSTOLIC (NEBIVOLOL HYDROCHLORIDE) [Concomitant]
  13. OXAOVIN MESYLATE (OTHER THERAPEUTIC PRODUCTS) [Concomitant]

REACTIONS (1)
  - Malaise [None]
